FAERS Safety Report 4875402-X (Version None)
Quarter: 2006Q1

REPORT INFORMATION
  Report Type: 
  Country: None (occurrence: None)
  Receive Date: 20060105
  Receipt Date: 20051223
  Transmission Date: 20060701
  Serious: Yes (Other)
  Sender: FDA-Public Use
  Company Number: 2005173306

PATIENT
  Sex: Female
  Weight: 71.6683 kg

DRUGS (6)
  1. CELEBREX [Suspect]
     Indication: ARTHRITIS
     Dosage: 200 MG (200 MG, 1 IN 1 D)
  2. BEXTRA [Suspect]
     Indication: ARTHRITIS
  3. NAPROSYN [Suspect]
     Indication: ARTHRITIS
  4. ACTONEL [Concomitant]
  5. MULTIVITAMIN [Concomitant]
  6. ACETYLSALICYLIC ACID SRT [Concomitant]

REACTIONS (4)
  - DYSPEPSIA [None]
  - NAUSEA [None]
  - OSTEOARTHRITIS [None]
  - SHOULDER PAIN [None]
